FAERS Safety Report 16135319 (Version 6)
Quarter: 2019Q3

REPORT INFORMATION
  Report Type: Spontaneous
  Country: US (occurrence: US)
  Receive Date: 20190329
  Receipt Date: 20190923
  Transmission Date: 20191004
  Serious: No
  Sender: FDA-Public Use
  Company Number: US-SA-2019SA082901

PATIENT
  Age: 61 Year
  Sex: Male

DRUGS (16)
  1. DUPIXENT [Suspect]
     Active Substance: DUPILUMAB
     Dosage: 300 MG, Q4W
     Route: 058
     Dates: start: 20181212
  2. ZETIA [Concomitant]
     Active Substance: EZETIMIBE
  3. DUPIXENT [Suspect]
     Active Substance: DUPILUMAB
     Indication: DERMATITIS ATOPIC
     Dosage: 300 MG, QOW
     Route: 058
     Dates: start: 20181210, end: 201812
  4. QUERCETIN [Concomitant]
     Active Substance: QUERCETIN
  5. COENZYME Q10 [Concomitant]
     Active Substance: UBIDECARENONE
  6. ZYRTEC [Concomitant]
     Active Substance: CETIRIZINE HYDROCHLORIDE
  7. NIACIN. [Concomitant]
     Active Substance: NIACIN
  8. VITAMIN D3 [Concomitant]
     Active Substance: CHOLECALCIFEROL
  9. ZINC PICOLINAT [Concomitant]
  10. FLUOCINONIDE. [Concomitant]
     Active Substance: FLUOCINONIDE
  11. COLESTIPOL [Concomitant]
     Active Substance: COLESTIPOL
  12. FLAXSEED OIL [LINUM USITATISSIMUM OIL] [Concomitant]
  13. GLUCOSAMINE [Concomitant]
     Active Substance: GLUCOSAMINE
  14. KETOCONAZOLE. [Concomitant]
     Active Substance: KETOCONAZOLE
  15. VITAMINS NOS [Concomitant]
     Active Substance: VITAMINS
  16. SUMATRIPTAN. [Concomitant]
     Active Substance: SUMATRIPTAN

REACTIONS (7)
  - Dermatitis atopic [Not Recovered/Not Resolved]
  - Dermatitis atopic [Not Recovered/Not Resolved]
  - Product dose omission [Unknown]
  - Arthralgia [Not Recovered/Not Resolved]
  - Rash [Not Recovered/Not Resolved]
  - Product use issue [Unknown]
  - Fall [Not Recovered/Not Resolved]

NARRATIVE: CASE EVENT DATE: 201812
